FAERS Safety Report 11968678 (Version 1)
Quarter: 2016Q1

REPORT INFORMATION
  Report Type: Spontaneous
  Country: US (occurrence: US)
  Receive Date: 20160128
  Receipt Date: 20160128
  Transmission Date: 20160526
  Serious: No
  Sender: FDA-Public Use
  Company Number: US-ZYDUS-007967

PATIENT
  Age: 52 Year
  Sex: Male

DRUGS (2)
  1. NAPROXEN. [Concomitant]
     Active Substance: NAPROXEN
     Indication: PRODUCT USED FOR UNKNOWN INDICATION
  2. RIBAVIRIN. [Suspect]
     Active Substance: RIBAVIRIN
     Indication: HEPATITIS C
     Dosage: DOSAGE: 2 TABLETS IN THE MORNING AND 3 TABLETS IN THE EVENING.
     Route: 048

REACTIONS (2)
  - Haemorrhage [Unknown]
  - Irritability [Unknown]

NARRATIVE: CASE EVENT DATE: 20150428
